FAERS Safety Report 19362494 (Version 1)
Quarter: 2021Q2

REPORT INFORMATION
  Report Type: Other
  Country: US (occurrence: US)
  Receive Date: 20210601
  Receipt Date: 20210601
  Transmission Date: 20210717
  Serious: No
  Sender: FDA-Public Use
  Company Number: US-NOVA LABORATORIES LIMITED-2112197

PATIENT
  Age: 15 Year
  Sex: Female

DRUGS (1)
  1. PURIXAN [Suspect]
     Active Substance: MERCAPTOPURINE
     Indication: EPSTEIN-BARR VIRUS TEST POSITIVE

REACTIONS (1)
  - Off label use [None]
